FAERS Safety Report 5679158-2 (Version None)
Quarter: 2008Q1

REPORT INFORMATION
  Report Type: 
  Country: None (occurrence: None)
  Receive Date: 20080325
  Receipt Date: 20080313
  Transmission Date: 20080703
  Serious: Yes (Life-Threatening, Other)
  Sender: FDA-Public Use
  Company Number: AU-WYE-G01139408

PATIENT
  Age: 6 Year
  Sex: Male
  Weight: 300 kg

DRUGS (1)
  1. ADVIL [Suspect]
     Dosage: UNKNOWN

REACTIONS (3)
  - DRUG ADMINISTRATION ERROR [None]
  - MOVEMENT DISORDER [None]
  - PULSE ABSENT [None]
